FAERS Safety Report 7351950 (Version 2)
Quarter: 2013Q4

REPORT INFORMATION
  Report Type: Spontaneous
  Country: US (occurrence: None)
  Receive Date: 20100324
  Receipt Date: 20131227
  Transmission Date: 20140711
  Serious: Yes (Hospitalization, Other)
  Sender: FDA-Public Use
  Company Number: 2010S1001629

PATIENT
  Age: 64 Year
  Sex: Male
  Weight: 75.3 kg

DRUGS (8)
  1. FLEET ENEMA (118 MILLILITRE(S), RECTAL SOLUTION) [Suspect]
     Indication: CONSTIPATION
     Route: 048
  2. CELEBREX (CELECOXIB) [Suspect]
     Indication: OSTEOARTHRITIS
  3. BEXTRA [Suspect]
     Indication: OSTEOARTHRITIS
  4. FLOMAX [Concomitant]
  5. LEXAPRO [Concomitant]
  6. AMBIEN [Concomitant]
  7. PREVACID (LANSOPRAZOLE) [Concomitant]
  8. PRAVACHOL [Concomitant]

REACTIONS (5)
  - Dialysis [None]
  - Renal disorder [None]
  - Blood creatinine increased [None]
  - Anaemia [None]
  - Renal failure acute [None]
